FAERS Safety Report 19050721 (Version 1)
Quarter: 2021Q1

REPORT INFORMATION
  Report Type: Spontaneous
  Country: NL (occurrence: NL)
  Receive Date: 20210324
  Receipt Date: 20210324
  Transmission Date: 20210420
  Serious: Yes (Other)
  Sender: FDA-Public Use
  Company Number: NL-AUROBINDO-AUR-APL-2021-011565

PATIENT
  Sex: Male
  Weight: 90 kg

DRUGS (2)
  1. PAROXETIN FILM?COATED TABLET 20MG [Suspect]
     Active Substance: PAROXETINE
     Indication: DEPRESSION
     Dosage: 20 MILLIGRAM, ONCE A DAY (1DD 1)
     Route: 065
     Dates: start: 202004, end: 20210101
  2. BUDESONIDE;FORMOTEROL [Concomitant]
     Active Substance: BUDESONIDE\FORMOTEROL
     Indication: PRODUCT USED FOR UNKNOWN INDICATION
     Dosage: UNK 100/6 ?G/DOSIS (MICROGRAM PER DOSIS)
     Route: 065

REACTIONS (1)
  - Bruxism [Recovered/Resolved]
